FAERS Safety Report 13668658 (Version 4)
Quarter: 2017Q3

REPORT INFORMATION
  Report Type: Report from Study
  Country: US (occurrence: US)
  Receive Date: 20170620
  Receipt Date: 20170707
  Transmission Date: 20171127
  Serious: Yes (Hospitalization)
  Sender: FDA-Public Use
  Company Number: US-JNJFOC-20170613207

PATIENT
  Age: 12 Year
  Sex: Female
  Weight: 39.8 kg

DRUGS (13)
  1. OXYBUTYNIN [Concomitant]
     Active Substance: OXYBUTYNIN
     Route: 065
  2. MESALAMINE. [Concomitant]
     Active Substance: MESALAMINE
     Route: 065
  3. REMICADE [Suspect]
     Active Substance: INFLIXIMAB
     Indication: INFLAMMATORY BOWEL DISEASE
     Route: 042
     Dates: start: 20090701
  4. PREVACID [Concomitant]
     Active Substance: LANSOPRAZOLE
     Route: 065
  5. BACTRIM [Concomitant]
     Active Substance: SULFAMETHOXAZOLE\TRIMETHOPRIM
     Route: 065
  6. AZATHIOPRINE. [Suspect]
     Active Substance: AZATHIOPRINE
     Indication: PRODUCT USED FOR UNKNOWN INDICATION
     Route: 065
  7. VITAMIN C [Concomitant]
     Active Substance: ASCORBIC ACID
     Route: 065
  8. REMICADE [Suspect]
     Active Substance: INFLIXIMAB
     Indication: INFLAMMATORY BOWEL DISEASE
     Route: 042
     Dates: start: 20080402, end: 20081103
  9. 5-ASA [Suspect]
     Active Substance: MESALAMINE
     Indication: PRODUCT USED FOR UNKNOWN INDICATION
     Route: 048
  10. IMIPRAMINE [Concomitant]
     Active Substance: IMIPRAMINE
     Route: 065
  11. RIFAXIMIN [Concomitant]
     Active Substance: RIFAXIMIN
     Route: 065
  12. ZANTAC [Concomitant]
     Active Substance: RANITIDINE HYDROCHLORIDE
     Route: 065
  13. MELATONIN [Concomitant]
     Active Substance: MELATONIN
     Dosage: 1-3 TABLET/NIGHT
     Route: 065

REACTIONS (1)
  - Dehydration [Recovered/Resolved]

NARRATIVE: CASE EVENT DATE: 20141021
